FAERS Safety Report 7399939-7 (Version None)
Quarter: 2011Q2

REPORT INFORMATION
  Report Type: 
  Country: None (occurrence: None)
  Receive Date: 20110407
  Receipt Date: 20110325
  Transmission Date: 20111010
  Serious: Yes (Other)
  Sender: FDA-Public Use
  Company Number: US-JNJFOC-20110312421

PATIENT
  Sex: Male
  Weight: 81.19 kg

DRUGS (4)
  1. FENTANYL-100 [Suspect]
     Indication: PAIN
     Route: 062
  2. BLOOD PRESSURE MEDICATION NOS [Concomitant]
     Indication: HYPERTENSION
     Route: 065
  3. DURAGESIC [Suspect]
     Route: 062
  4. DURAGESIC [Suspect]
     Indication: PAIN
     Route: 062

REACTIONS (11)
  - INFLUENZA [None]
  - HYPERTENSION [None]
  - HYPERHIDROSIS [None]
  - DIARRHOEA [None]
  - HOT FLUSH [None]
  - WITHDRAWAL SYNDROME [None]
  - PNEUMONIA [None]
  - BREAKTHROUGH PAIN [None]
  - DYSPNOEA [None]
  - THERAPEUTIC RESPONSE UNEXPECTED WITH DRUG SUBSTITUTION [None]
  - WEIGHT DECREASED [None]
